FAERS Safety Report 19292891 (Version 1)
Quarter: 2021Q2

REPORT INFORMATION
  Report Type: Spontaneous
  Country: US (occurrence: US)
  Receive Date: 20210524
  Receipt Date: 20210524
  Transmission Date: 20210717
  Serious: No
  Sender: FDA-Public Use
  Company Number: US-HIKMA PHARMACEUTICALS USA INC.-US-H14001-21-00168

PATIENT
  Sex: Female

DRUGS (1)
  1. LIDOCAINE. [Suspect]
     Active Substance: LIDOCAINE
     Indication: APHTHOUS ULCER
     Route: 048
     Dates: start: 20210107

REACTIONS (5)
  - Condition aggravated [Not Recovered/Not Resolved]
  - Aphthous ulcer [Not Recovered/Not Resolved]
  - Dysphagia [Recovering/Resolving]
  - Anxiety [Recovering/Resolving]
  - Product administration interrupted [Unknown]
